FAERS Safety Report 21873428 (Version 1)
Quarter: 2023Q1

REPORT INFORMATION
  Report Type: Other
  Country: US (occurrence: None)
  Receive Date: 20230117
  Receipt Date: 20230117
  Transmission Date: 20230417
  Serious: No
  Sender: FDA-Public Use
  Company Number: US-ROCHE-3256931

PATIENT
  Age: 59 Year
  Sex: Female

DRUGS (1)
  1. OCREVUS [Suspect]
     Active Substance: OCRELIZUMAB
     Indication: Product used for unknown indication
     Dosage: DATE OF MOST RECENT INFUSION : 07/JAN/2022, DATE OF NEXT INFUSION: 02/JUL/2021
     Route: 065

REACTIONS (1)
  - COVID-19 [Unknown]
